FAERS Safety Report 23487295 (Version 1)
Quarter: 2024Q1

REPORT INFORMATION
  Report Type: Spontaneous
  Country: FR (occurrence: FR)
  Receive Date: 20240206
  Receipt Date: 20240206
  Transmission Date: 20240410
  Serious: Yes (Other)
  Sender: FDA-Public Use
  Company Number: None

PATIENT
  Age: 25 Year
  Sex: Female

DRUGS (1)
  1. SPIRONOLACTONE [Suspect]
     Active Substance: SPIRONOLACTONE
     Indication: Acne
     Dosage: 75 MILLIGRAM, BID (75 MG X2/DAY/150 MILLIGRAM PER DAY)
     Route: 048
     Dates: start: 2019

REACTIONS (2)
  - Arrhythmia [Unknown]
  - Extrasystoles [Unknown]
